FAERS Safety Report 11794578 (Version 1)
Quarter: 2015Q4

REPORT INFORMATION
  Report Type: Spontaneous
  Country: GB (occurrence: GB)
  Receive Date: 20151202
  Receipt Date: 20151202
  Transmission Date: 20160305
  Serious: Yes (Hospitalization)
  Sender: FDA-Public Use
  Company Number: GB-FRESENIUS KABI-FK201506255

PATIENT
  Age: 82 Year
  Sex: Female

DRUGS (2)
  1. LIGNOCAINE [Concomitant]
     Active Substance: LIDOCAINE HYDROCHLORIDE
     Indication: INFILTRATION ANAESTHESIA
     Route: 050
  2. DEXAMETHASONE INJECTION (MANUFACTURER UNKNOWN) [Suspect]
     Active Substance: DEXAMETHASONE
     Indication: INFILTRATION ANAESTHESIA
     Route: 065

REACTIONS (3)
  - Paraplegia [Recovered/Resolved with Sequelae]
  - Paraplegia [Not Recovered/Not Resolved]
  - Product use issue [Not Recovered/Not Resolved]
